FAERS Safety Report 6252274-2 (Version None)
Quarter: 2009Q3

REPORT INFORMATION
  Report Type: 
  Country: None (occurrence: None)
  Receive Date: 20090701
  Receipt Date: 20090626
  Transmission Date: 20100115
  Serious: Yes (Other)
  Sender: FDA-Public Use
  Company Number: US-RB-017441-09

PATIENT
  Age: 29 Year
  Sex: Female

DRUGS (2)
  1. SUBUTEX [Suspect]
     Dosage: DOSE UNKNOWN
     Route: 060
     Dates: start: 20070701, end: 20070901
  2. SUBOXONE [Suspect]
     Dosage: DOSE UNKNOWN
     Route: 060
     Dates: start: 20070901, end: 20080101

REACTIONS (3)
  - AMNESIA [None]
  - GAIT DISTURBANCE [None]
  - SUICIDAL IDEATION [None]
